FAERS Safety Report 19726184 (Version 1)
Quarter: 2021Q3

REPORT INFORMATION
  Report Type: Report from Study
  Country: US (occurrence: US)
  Receive Date: 20210820
  Receipt Date: 20210820
  Transmission Date: 20211014
  Serious: Yes (Other)
  Sender: FDA-Public Use
  Company Number: US-JAZZ-2021-US-014963

PATIENT
  Age: 63 Year
  Sex: Male

DRUGS (3)
  1. XYREM [Suspect]
     Active Substance: SODIUM OXYBATE
     Dosage: DOSE ADJUSTMENT
     Route: 048
     Dates: start: 201102, end: 201104
  2. XYREM [Suspect]
     Active Substance: SODIUM OXYBATE
     Dosage: 4.5 GRAM, BID
     Route: 048
     Dates: start: 201104
  3. XYREM [Suspect]
     Active Substance: SODIUM OXYBATE
     Indication: HYPERSOMNIA
     Dosage: 2.25 GRAM, BID
     Route: 048
     Dates: start: 201102, end: 201102

REACTIONS (30)
  - Posture abnormal [Unknown]
  - Rotator cuff syndrome [Unknown]
  - Cataract [Unknown]
  - Essential tremor [Unknown]
  - Vitreous floaters [Unknown]
  - Injury [Unknown]
  - Keratitis [Unknown]
  - Inguinal hernia [Unknown]
  - Umbilical hernia [Recovered/Resolved]
  - Peripheral sensory neuropathy [Unknown]
  - Fibromyalgia [Unknown]
  - Cartilage injury [Unknown]
  - Myositis [Recovered/Resolved]
  - Myalgia [Recovered/Resolved]
  - Neuropathy peripheral [Unknown]
  - Hydrocele [Unknown]
  - Varicose vein [Unknown]
  - Thoracic outlet syndrome [Unknown]
  - Asthenia [Unknown]
  - Oedema peripheral [Unknown]
  - Balance disorder [Unknown]
  - Musculoskeletal disorder [Recovered/Resolved]
  - Flushing [Unknown]
  - Skin disorder [Unknown]
  - Basal cell carcinoma [Unknown]
  - Osteopenia [Unknown]
  - Papule [Recovered/Resolved]
  - Muscle spasms [Recovered/Resolved]
  - Arthralgia [Unknown]
  - Rosacea [Unknown]

NARRATIVE: CASE EVENT DATE: 202003
